FAERS Safety Report 8295697-2 (Version None)
Quarter: 2012Q2

REPORT INFORMATION
  Report Type: 
  Country: None (occurrence: None)
  Receive Date: 20120418
  Receipt Date: 20120413
  Transmission Date: 20120825
  Serious: Yes (Hospitalization)
  Sender: FDA-Public Use
  Company Number: GB-AMGEN-GBRSP2012016421

PATIENT
  Age: 53 Year
  Sex: Female
  Weight: 61 kg

DRUGS (7)
  1. DOCETAXEL [Concomitant]
     Dosage: UNK
  2. METHOTREXATE [Concomitant]
     Indication: CHEMOTHERAPY
     Dosage: 1000 MG, UNK
     Dates: start: 20120112, end: 20120119
  3. FLUOROURACIL [Concomitant]
     Indication: CHEMOTHERAPY
     Dosage: UNK
  4. CYCLOPHOSPHAMIDE [Concomitant]
     Indication: CHEMOTHERAPY
     Dosage: 1000 MG, UNK
     Dates: start: 20120112, end: 20120119
  5. EPIRUBICIN [Concomitant]
     Dosage: UNK
  6. NEULASTA [Suspect]
     Indication: BREAST CANCER
     Dosage: 6 MG, UNK
     Route: 058
     Dates: start: 20120120, end: 20120120
  7. FILGRASTIM [Concomitant]

REACTIONS (2)
  - NEUTROPENIC SEPSIS [None]
  - DRUG INEFFECTIVE [None]
